FAERS Safety Report 4637406-1 (Version None)
Quarter: 2005Q2

REPORT INFORMATION
  Report Type: 
  Country: None (occurrence: None)
  Receive Date: 20050418
  Receipt Date: 20040827
  Transmission Date: 20051028
  Serious: Yes (Hospitalization)
  Sender: FDA-Public Use
  Company Number: US-BRISTOL-MYERS SQUIBB COMPANY-12686739

PATIENT
  Age: 49 Year
  Sex: Male
  Weight: 88 kg

DRUGS (2)
  1. HYDROXYUREA [Suspect]
     Indication: POLYCYTHAEMIA VERA
     Route: 048
     Dates: start: 20040717, end: 20040823
  2. METOPROLOL TARTRATE [Concomitant]
     Route: 048
     Dates: start: 20040501

REACTIONS (5)
  - CHILLS [None]
  - DYSGEUSIA [None]
  - PYREXIA [None]
  - SKIN LESION [None]
  - TONGUE COATED [None]
